FAERS Safety Report 9662259 (Version 2)
Quarter: 2013Q4

REPORT INFORMATION
  Report Type: Spontaneous
  Country: US (occurrence: US)
  Receive Date: 20131031
  Receipt Date: 20131031
  Transmission Date: 20140711
  Serious: Yes (Hospitalization)
  Sender: FDA-Public Use
  Company Number: US-NAPPMUNDI-USA-2010-0049379

PATIENT
  Age: 47 Year
  Sex: Female

DRUGS (7)
  1. OXYCONTIN (NDA 22-272) [Suspect]
     Indication: ANALGESIC THERAPY
     Dosage: 440 MG, BID
     Dates: start: 201009
  2. OXYCONTIN (NDA 22-272) [Suspect]
     Dosage: 20 MG, UNK
  3. OXYCONTIN (NDA 22-272) [Suspect]
     Dosage: 40 MG, UNK
  4. OXYCODONE HYDROCHLORIDE (SIMILAR TO NDA 22-272) [Concomitant]
     Indication: BREAKTHROUGH PAIN
  5. XANAX [Concomitant]
     Indication: ANXIETY
  6. VALIUM                             /00017001/ [Concomitant]
     Indication: MUSCLE SPASMS
  7. DURAGESIC                          /00070401/ [Concomitant]
     Indication: PRODUCT USED FOR UNKNOWN INDICATION

REACTIONS (7)
  - Drug withdrawal syndrome [Recovered/Resolved]
  - Pain [Not Recovered/Not Resolved]
  - Wrong technique in drug usage process [Unknown]
  - Medication residue present [Unknown]
  - Drug ineffective [Unknown]
  - Depression [Unknown]
  - Drug effect decreased [Unknown]
